FAERS Safety Report 5673008-6 (Version None)
Quarter: 2008Q1

REPORT INFORMATION
  Report Type: 
  Country: None (occurrence: None)
  Receive Date: 20080319
  Receipt Date: 20080312
  Transmission Date: 20080703
  Serious: Yes (Hospitalization)
  Sender: FDA-Public Use
  Company Number: B0513005A

PATIENT
  Age: 64 Year
  Sex: Female

DRUGS (7)
  1. AVANDIA [Suspect]
     Indication: DRUG USE FOR UNKNOWN INDICATION
     Route: 065
  2. ALBYL-E [Concomitant]
  3. DIURAL [Concomitant]
  4. AMARYL [Concomitant]
  5. COZAAR [Concomitant]
  6. ACTIVELLE [Concomitant]
  7. SIMVASTATIN [Concomitant]

REACTIONS (3)
  - DYSPNOEA [None]
  - OEDEMA [None]
  - WEIGHT INCREASED [None]
